FAERS Safety Report 4309730-3 (Version None)
Quarter: 2004Q1

REPORT INFORMATION
  Report Type: 
  Country: None (occurrence: None)
  Receive Date: 20040301
  Receipt Date: 20040218
  Transmission Date: 20041129
  Serious: Yes (Hospitalization)
  Sender: FDA-Public Use
  Company Number: 163-20785-04020487

PATIENT
  Age: 64 Year
  Sex: Female

DRUGS (1)
  1. THALOMID [Suspect]
     Indication: PANCREATIC CARCINOMA
     Dosage: 200 MG, DAILY, ORAL
     Route: 048
     Dates: start: 20040204

REACTIONS (2)
  - AGITATION [None]
  - HALLUCINATION [None]
